FAERS Safety Report 12956498 (Version 1)
Quarter: 2016Q4

REPORT INFORMATION
  Report Type: Report from Study
  Country: KR (occurrence: KR)
  Receive Date: 20161118
  Receipt Date: 20161118
  Transmission Date: 20170207
  Serious: Yes (Other)
  Sender: FDA-Public Use
  Company Number: KR-OTSUKA-JP-2013-12631

PATIENT
  Age: 72 Year
  Sex: Female

DRUGS (22)
  1. SYNTHYROXINE [Suspect]
     Active Substance: LEVOTHYROXINE SODIUM
     Indication: HYPONATRAEMIA
     Dosage: UNK
     Route: 065
     Dates: start: 20130704, end: 20130705
  2. LASIX [Concomitant]
     Active Substance: FUROSEMIDE
     Dosage: UNK
     Route: 065
     Dates: start: 20130708, end: 20130708
  3. SALINE [Concomitant]
     Active Substance: SODIUM CHLORIDE
     Indication: PRODUCT USED FOR UNKNOWN INDICATION
     Dosage: 1000 ML, QD
     Route: 065
     Dates: start: 20130708, end: 20130708
  4. VASTINAN MR [Concomitant]
     Indication: PRODUCT USED FOR UNKNOWN INDICATION
     Dosage: 35 MG, QD
     Route: 048
     Dates: start: 20130708, end: 20130708
  5. VITAMIN K1 [Concomitant]
     Active Substance: PHYTONADIONE
     Indication: PRODUCT USED FOR UNKNOWN INDICATION
     Dosage: UNK
     Route: 065
     Dates: start: 20130704, end: 20130704
  6. TOLVAPTAN [Suspect]
     Active Substance: TOLVAPTAN
     Indication: HYPOOSMOLAR STATE
     Dosage: 15 MG, QD
     Route: 048
     Dates: start: 20130704, end: 20130705
  7. ALDACTONE [Suspect]
     Active Substance: SPIRONOLACTONE
     Indication: HYPOOSMOLAR STATE
     Dosage: 12.5 MG, QD
     Route: 065
     Dates: start: 20130704, end: 20130705
  8. DIGOSIN [Concomitant]
     Active Substance: DIGOXIN
     Indication: PRODUCT USED FOR UNKNOWN INDICATION
     Dosage: 5 DF, QD
     Route: 048
     Dates: start: 20130708, end: 20130708
  9. ALDACTONE [Suspect]
     Active Substance: SPIRONOLACTONE
     Indication: HYPONATRAEMIA
     Dosage: UNK
     Route: 065
     Dates: start: 20130708, end: 20130708
  10. LASIX [Concomitant]
     Active Substance: FUROSEMIDE
     Dosage: 280 MG, QD
     Route: 042
     Dates: start: 20130706, end: 20130706
  11. TOLVAPTAN [Suspect]
     Active Substance: TOLVAPTAN
     Indication: HYPONATRAEMIA
     Dosage: 15 MG, QD
     Route: 048
     Dates: start: 20130708, end: 20130708
  12. COUMADIN [Suspect]
     Active Substance: WARFARIN SODIUM
     Indication: HYPONATRAEMIA
  13. DEXTROSE 10% [Concomitant]
     Indication: PRODUCT USED FOR UNKNOWN INDICATION
     Dosage: 500 ML, QD
     Route: 065
     Dates: start: 20130708, end: 20130708
  14. DECAQUINON [Concomitant]
     Indication: PRODUCT USED FOR UNKNOWN INDICATION
     Dosage: 2 DF, QD
     Route: 048
     Dates: start: 20130708, end: 20130708
  15. DOBUTAMINE [Concomitant]
     Active Substance: DOBUTAMINE\DOBUTAMINE HYDROCHLORIDE
     Indication: PRODUCT USED FOR UNKNOWN INDICATION
     Dosage: 1000 MG, QD
     Route: 042
     Dates: start: 20130708, end: 20130708
  16. LASIX [Concomitant]
     Active Substance: FUROSEMIDE
     Dosage: 20 MG, QD
     Route: 042
     Dates: start: 20130705, end: 20130705
  17. ATROVENT UDV [Concomitant]
     Active Substance: IPRATROPIUM BROMIDE
     Indication: PRODUCT USED FOR UNKNOWN INDICATION
     Dosage: 500 ?G, QD
     Route: 065
     Dates: start: 20130708, end: 20130708
  18. SYNTHYROXINE [Suspect]
     Active Substance: LEVOTHYROXINE SODIUM
     Indication: HYPOOSMOLAR STATE
     Dosage: 50 ?G, QD
     Route: 048
     Dates: start: 20130708, end: 20130708
  19. COUMADIN [Suspect]
     Active Substance: WARFARIN SODIUM
     Indication: HYPOOSMOLAR STATE
     Dosage: 7.5 MG, QD
     Route: 048
     Dates: start: 20130708, end: 20130708
  20. LASIX [Concomitant]
     Active Substance: FUROSEMIDE
     Indication: PRODUCT USED FOR UNKNOWN INDICATION
     Dosage: 40 MG, QD
     Route: 048
     Dates: start: 20130704, end: 20130704
  21. VENTOLIN [Concomitant]
     Active Substance: ALBUTEROL SULFATE
     Indication: PRODUCT USED FOR UNKNOWN INDICATION
     Dosage: 1 DF, QD
     Route: 065
     Dates: start: 20130708, end: 20130708
  22. VITAMIN K1 [Concomitant]
     Active Substance: PHYTONADIONE
     Dosage: 10 MG, QD
     Route: 042
     Dates: start: 20130708, end: 20130708

REACTIONS (2)
  - Aspartate aminotransferase increased [Recovered/Resolved with Sequelae]
  - Alanine aminotransferase increased [Recovered/Resolved with Sequelae]

NARRATIVE: CASE EVENT DATE: 20130708
